FAERS Safety Report 10067988 (Version 1)
Quarter: 2014Q2

REPORT INFORMATION
  Report Type: Spontaneous
  Country: FR (occurrence: FR)
  Receive Date: 20140409
  Receipt Date: 20140409
  Transmission Date: 20141212
  Serious: Yes (Hospitalization)
  Sender: FDA-Public Use
  Company Number: FR-PFIZER INC-2014094929

PATIENT
  Age: 58 Year
  Sex: Male

DRUGS (5)
  1. TAZOCILLINE [Suspect]
     Dosage: UNK
     Route: 042
     Dates: start: 20140228, end: 20140317
  2. VANCOMYCIN [Suspect]
     Dosage: UNK
     Route: 042
     Dates: start: 20140228, end: 20140317
  3. TARGOCID [Suspect]
     Dosage: UNK
     Dates: start: 20140317, end: 20140319
  4. OFLOCET [Concomitant]
     Dosage: UNK
     Dates: start: 20140317, end: 20140319
  5. RIFAMPICIN [Concomitant]
     Dosage: UNK
     Dates: start: 20140317, end: 20140319

REACTIONS (1)
  - Drug reaction with eosinophilia and systemic symptoms [Not Recovered/Not Resolved]
